FAERS Safety Report 10146509 (Version 2)
Quarter: 2014Q2

REPORT INFORMATION
  Report Type: Spontaneous
  Country: US (occurrence: None)
  Receive Date: 20140429
  Receipt Date: 20140529
  Transmission Date: 20141212
  Serious: Yes (Life-Threatening)
  Sender: FDA-Public Use
  Company Number: 2014SGN00397

PATIENT
  Age: 59 Year
  Sex: Male
  Weight: 48.2 kg

DRUGS (26)
  1. BRENTUXIMAB VEDOTIN (BRENTUXIMAB VEDOTIN) INJECTION [Suspect]
     Indication: ACUTE MYELOID LEUKAEMIA
     Route: 042
     Dates: start: 20140327, end: 20140327
  2. CALCIUM CARBONATE (CALCIUM CARBONATE) (CALCIUM CARBONATE) [Concomitant]
  3. LEVAQUIN (LEVOFLOXACIN) [Concomitant]
  4. MAGNESIUM OXIDE (MAGNESIUM OXIDE) [Concomitant]
  5. NOXAFIL (POSACONAZOLE) [Concomitant]
  6. PROTONIX (PANTOPRAZOLE) [Concomitant]
  7. POTASSIUM CHLORIDE (POTASSIUM CHLORIDE) [Concomitant]
  8. TACROLIMUS (TACROLIMUS) [Concomitant]
  9. TRAMADOL (TRAMADOL HYDROCHLORIDE) [Concomitant]
  10. METHYLPREDNISOLONE (METHYLPREDNISOLONE) [Concomitant]
  11. VALGANCICLOVIR (VALGANCICLOVIR) [Concomitant]
  12. OTHER AGENTS FOR LOCAL ORAL TREATMENT [Concomitant]
  13. ACETAMINOPHEN  (ACETAMINOPHEN) [Concomitant]
  14. ALLOPURINOL (ALLOPURINOL) [Concomitant]
  15. METRONIDAZOLE (METRONIDAZOLE SODIUM) [Concomitant]
  16. NYSTATIN (NYSTATIN) [Concomitant]
  17. POSACONAZOLE (POSACONAZOLE SODIUM) [Concomitant]
  18. SUCRALFATE (SUCRALFATE) [Concomitant]
  19. VALACICLOVIR (VALACICLOVIR) [Concomitant]
  20. SODIUM CHLORIDE (SODIUM CHLORIDE) [Concomitant]
  21. MYLANTA (ALUMINIUM HYDROXIDE GEL, DRIED, MAGNESIUM HYDROXIDE, SIMETICONE) [Concomitant]
  22. DEXTROMETHORPHAN HYDROBROMIDE W/GUAIFENESIN (DEXTROMETHORPHAN HYDROBROMIDE W/GUAIFENESIN) [Concomitant]
  23. DEXTROSE W/SODIUM CHLORIDE (DEXTROSE W/SODIIUM CHLORIDE) [Concomitant]
  24. DIPHENOXYLATE/ATROPINE  (ATROPINE SULFATE, DIPHENOXYLATE HYDROCHLORIDE) [Concomitant]
  25. HYDROCORTISONE (HYDROCORTISONE HYDROGEN SUCCINATE) [Concomitant]
  26. ONDANSETRON (ONDANSETRON) [Concomitant]

REACTIONS (3)
  - Hyponatraemia [None]
  - Failure to thrive [None]
  - Acute myeloid leukaemia [None]
